FAERS Safety Report 10015953 (Version 2)
Quarter: 2014Q1

REPORT INFORMATION
  Report Type: Spontaneous
  Country: US (occurrence: US)
  Receive Date: 20140317
  Receipt Date: 20140317
  Transmission Date: 20141002
  Serious: No
  Sender: FDA-Public Use
  Company Number: US-AMGEN-USASP2013083812

PATIENT
  Age: 27 Year
  Sex: Male
  Weight: 68.93 kg

DRUGS (2)
  1. ENBREL [Suspect]
     Indication: PSORIASIS
     Dosage: 50 MG, QWK
     Route: 058
     Dates: start: 20091006, end: 20100421
  2. STELARA [Concomitant]
     Dosage: UNK

REACTIONS (3)
  - Adverse drug reaction [Recovered/Resolved]
  - Drug hypersensitivity [Recovered/Resolved]
  - Psoriasis [Recovered/Resolved]
